FAERS Safety Report 25035927 (Version 1)
Quarter: 2025Q1

REPORT INFORMATION
  Report Type: Spontaneous
  Country: US (occurrence: None)
  Receive Date: 20250303
  Receipt Date: 20250303
  Transmission Date: 20250409
  Serious: Yes (Death)
  Sender: FDA-CTU
  Company Number: None

PATIENT
  Sex: Female

DRUGS (5)
  1. SIMLANDI [Suspect]
     Active Substance: ADALIMUMAB-RYVK
     Indication: Rheumatoid arthritis
     Dosage: FREQUENCY : EVERY OTHER WEEK;?
     Route: 058
     Dates: start: 20250124
  2. HUMIRA [Concomitant]
     Active Substance: ADALIMUMAB
  3. KENALOG-10 INJ 10MG/ML [Concomitant]
  4. KETOROLAC INJ 15MG/ML [Concomitant]
  5. VANCOMYCIN INJ 1 GM [Concomitant]

REACTIONS (1)
  - Death [None]
